FAERS Safety Report 6500676-9 (Version None)
Quarter: 2009Q4

REPORT INFORMATION
  Report Type: 
  Country: None (occurrence: None)
  Receive Date: 20091216
  Receipt Date: 20090107
  Transmission Date: 20100525
  Serious: No
  Sender: FDA-Public Use
  Company Number: A0762661A

PATIENT
  Age: 33 Year
  Sex: Female

DRUGS (1)
  1. COMMIT [Suspect]
     Dates: start: 20090102, end: 20090102

REACTIONS (5)
  - DYSPNOEA [None]
  - HAEMOPTYSIS [None]
  - HYPERSENSITIVITY [None]
  - HYPOAESTHESIA [None]
  - PHARYNGEAL HYPOAESTHESIA [None]
